FAERS Safety Report 14500295 (Version 1)
Quarter: 2018Q1

REPORT INFORMATION
  Report Type: Spontaneous
  Country: None (occurrence: US)
  Receive Date: 20180207
  Receipt Date: 20180207
  Transmission Date: 20180509
  Serious: No
  Sender: FDA-Public Use
  Company Number: US-TEIKOKU PHARMA USA-TPU2017-00789

PATIENT
  Sex: Male
  Weight: 81.72 kg

DRUGS (14)
  1. LIDOCAINE PATCH [Suspect]
     Active Substance: LIDOCAINE
     Dosage: APPLY FOUR PATCHES (TWO TO EACH FOOT) FOR 12 HOURS ON AND 12 HOURS OFF.
     Route: 061
     Dates: start: 201712
  2. AMITRIPTYLINE [Concomitant]
     Active Substance: AMITRIPTYLINE
     Route: 048
  3. AMLODIPINE [Concomitant]
     Active Substance: AMLODIPINE BESYLATE
     Route: 048
  4. CLONAZEPAM. [Concomitant]
     Active Substance: CLONAZEPAM
  5. NITROGLYCERIN. [Concomitant]
     Active Substance: NITROGLYCERIN
  6. LIDOCAINE PATCH [Suspect]
     Active Substance: LIDOCAINE
     Indication: NEUROPATHY PERIPHERAL
     Dosage: APPLY FOUR PATCHES (TWO TO EACH FOOT) FOR 12 HOURS ON AND 12 HOURS OFF.
     Route: 061
     Dates: start: 1997, end: 201706
  7. PANTOPRAZOLE EC [Concomitant]
     Route: 048
  8. TAMSULOSIN [Concomitant]
     Active Substance: TAMSULOSIN
     Route: 048
  9. TAMSULOSIN [Concomitant]
     Active Substance: TAMSULOSIN
     Route: 048
  10. ASA LOW DOSE [Concomitant]
     Route: 048
  11. LOSARTAN POTASSIUM. [Concomitant]
     Active Substance: LOSARTAN POTASSIUM
     Route: 048
  12. ATORVASTATIN [Concomitant]
     Active Substance: ATORVASTATIN
     Indication: BLOOD CHOLESTEROL
     Route: 048
  13. FUROSEMIDE. [Concomitant]
     Active Substance: FUROSEMIDE
     Route: 048
  14. CARVEDILOL. [Concomitant]
     Active Substance: CARVEDILOL
     Indication: CARDIAC DISORDER
     Route: 048

REACTIONS (1)
  - Incorrect dose administered [Unknown]
